FAERS Safety Report 8353886-2 (Version None)
Quarter: 2012Q2

REPORT INFORMATION
  Report Type: 
  Country: None (occurrence: None)
  Receive Date: 20120511
  Receipt Date: 20120207
  Transmission Date: 20120825
  Serious: No
  Sender: FDA-Public Use
  Company Number: US-GLAXOSMITHKLINE-A0965383A

PATIENT
  Age: 43 Year
  Sex: Female

DRUGS (1)
  1. TYKERB [Suspect]
     Indication: BREAST CANCER
     Dosage: 1500MG PER DAY
     Route: 048

REACTIONS (6)
  - DIARRHOEA [None]
  - DERMATITIS ACNEIFORM [None]
  - ORAL PAIN [None]
  - GLOSSODYNIA [None]
  - URTICARIA [None]
  - STOMATITIS [None]
